FAERS Safety Report 23906988 (Version 2)
Quarter: 2024Q3

REPORT INFORMATION
  Report Type: Report from Study
  Country: US (occurrence: US)
  Receive Date: 20240528
  Receipt Date: 20240731
  Transmission Date: 20241017
  Serious: Yes (Other)
  Sender: JOHNSON AND JOHNSON
  Company Number: US-JNJFOC-20240551762

PATIENT
  Age: 56 Year
  Sex: Female

DRUGS (3)
  1. TREMFYA [Suspect]
     Active Substance: GUSELKUMAB
     Indication: Psoriasis
     Route: 065
     Dates: start: 202308
  2. TREMFYA [Suspect]
     Active Substance: GUSELKUMAB
     Indication: Psoriatic arthropathy
  3. TREMFYA [Suspect]
     Active Substance: GUSELKUMAB

REACTIONS (7)
  - Pneumonia [Unknown]
  - Disability [Unknown]
  - Pulmonary embolism [Unknown]
  - Nerve injury [Unknown]
  - Mass [Unknown]
  - Respiratory disorder [Unknown]
  - Inappropriate schedule of product administration [Unknown]
